FAERS Safety Report 11434495 (Version 5)
Quarter: 2016Q4

REPORT INFORMATION
  Report Type: Spontaneous
  Country: US (occurrence: US)
  Receive Date: 20150831
  Receipt Date: 20161222
  Transmission Date: 20170206
  Serious: Yes (Other)
  Sender: FDA-Public Use
  Company Number: US-BAYER-2015-403692

PATIENT
  Age: 54 Year
  Sex: Female
  Weight: 61.17 kg

DRUGS (9)
  1. ESTRADIOL. [Concomitant]
     Active Substance: ESTRADIOL
     Dosage: UNK
  2. BENADRYL [Concomitant]
     Active Substance: DIPHENHYDRAMINE HYDROCHLORIDE
     Dosage: UNK
  3. PROAIR HFA [Concomitant]
     Active Substance: ALBUTEROL SULFATE
     Indication: DYSPNOEA
  4. PSEUDOEPHEDRINE [Concomitant]
     Active Substance: PSEUDOEPHEDRINE
     Dosage: UNK
  5. ALEVE [Concomitant]
     Active Substance: NAPROXEN SODIUM
     Dosage: UNK
  6. PROAIR HFA [Concomitant]
     Active Substance: ALBUTEROL SULFATE
     Indication: WHEEZING
     Dosage: UNK
  7. DIPHENHYDRAMINE. [Concomitant]
     Active Substance: DIPHENHYDRAMINE
     Indication: INSOMNIA
     Dosage: UNK
  8. LEVAQUIN [Concomitant]
     Active Substance: LEVOFLOXACIN
     Dosage: 500 MG, QD
     Dates: start: 20150615
  9. AVELOX [Suspect]
     Active Substance: MOXIFLOXACIN HYDROCHLORIDE
     Dosage: 400 MG, UNK
     Dates: start: 201305

REACTIONS (34)
  - Pain [None]
  - Abdominal pain [None]
  - Haematochezia [None]
  - Burning sensation [None]
  - Muscular weakness [None]
  - Facial paralysis [None]
  - Menopausal symptoms [None]
  - Injury [None]
  - Urinary tract infection [None]
  - Chronic obstructive pulmonary disease [None]
  - Multiple sclerosis [None]
  - Small intestinal obstruction [None]
  - Pain in extremity [None]
  - Paraesthesia [None]
  - Anxiety [None]
  - Microcytic anaemia [None]
  - Asthma [None]
  - Dyspnoea [None]
  - Emotional distress [None]
  - Osteopenia [None]
  - Vomiting [None]
  - Anaemia [None]
  - Extraocular muscle paresis [None]
  - Crohn^s disease [None]
  - Neuropathy peripheral [None]
  - Nausea [None]
  - Intestinal obstruction [None]
  - Bronchitis [None]
  - Migraine [None]
  - Hypoaesthesia [None]
  - Lagophthalmos [None]
  - Diarrhoea [None]
  - Infected bite [None]
  - Cough [None]

NARRATIVE: CASE EVENT DATE: 201505
